FAERS Safety Report 5199037-7 (Version None)
Quarter: 2007Q1

REPORT INFORMATION
  Report Type: 
  Country: None (occurrence: None)
  Receive Date: 20070104
  Receipt Date: 20061228
  Transmission Date: 20070707
  Serious: Yes (Life-Threatening, Hospitalization, Other)
  Sender: FDA-Public Use
  Company Number: US-BRISTOL-MYERS SQUIBB COMPANY-13627658

PATIENT
  Sex: Female

DRUGS (7)
  1. ATAZANAVIR [Suspect]
     Dates: start: 20060101
  2. COMBIVIR [Suspect]
     Indication: HIV INFECTION
     Route: 048
     Dates: start: 20060101, end: 20060101
  3. RITONAVIR [Suspect]
     Dates: start: 20060101
  4. EFAVIRENZ [Concomitant]
  5. COTRIM D.S. [Concomitant]
  6. AZITHROMYCIN [Concomitant]
  7. CONTRACEPTIVE [Concomitant]
     Route: 048

REACTIONS (1)
  - HAEMOLYTIC ANAEMIA [None]
